FAERS Safety Report 8359816-1 (Version None)
Quarter: 2012Q2

REPORT INFORMATION
  Report Type: 
  Country: None (occurrence: None)
  Receive Date: 20120515
  Receipt Date: 20120509
  Transmission Date: 20120825
  Serious: Yes (Death, Other)
  Sender: FDA-Public Use
  Company Number: PHHY2012US040716

PATIENT
  Age: 61 Year
  Sex: Female

DRUGS (5)
  1. CYCLOSPORINE [Suspect]
     Indication: PROPHYLAXIS AGAINST GRAFT VERSUS HOST DISEASE
     Dosage: UNK UKN, UNK
  2. BUSULFAN [Concomitant]
     Dosage: 260 MG/M2
  3. MYCOPHENOLATE MOFETIL [Suspect]
     Indication: PROPHYLAXIS AGAINST GRAFT VERSUS HOST DISEASE
     Dosage: 1000 MG, TID
  4. ALEMTUZUMAB [Concomitant]
     Dosage: 80 MG, UNK
  5. FLUDARABINE PHOSPHATE [Concomitant]
     Dosage: 160 MG/M2

REACTIONS (5)
  - MULTI-ORGAN FAILURE [None]
  - HUMAN POLYOMAVIRUS INFECTION [None]
  - CYSTITIS VIRAL [None]
  - BLADDER PAIN [None]
  - GENERAL PHYSICAL HEALTH DETERIORATION [None]
